FAERS Safety Report 14467303 (Version 2)
Quarter: 2018Q1

REPORT INFORMATION
  Report Type: Spontaneous
  Country: GB (occurrence: GB)
  Receive Date: 20180131
  Receipt Date: 20180307
  Transmission Date: 20180509
  Serious: Yes (Hospitalization)
  Sender: FDA-Public Use
  Company Number: GB-LPDUSPRD-20180114

PATIENT
  Age: 44 Year
  Sex: Female
  Weight: 76.4 kg

DRUGS (1)
  1. FERINJECT [Suspect]
     Active Substance: FERRIC CARBOXYMALTOSE
     Dosage: 1 GM,1 TOTAL
     Route: 041
     Dates: start: 20161019, end: 20161019

REACTIONS (2)
  - Circulatory collapse [Recovered/Resolved]
  - Aphasia [Recovered/Resolved]

NARRATIVE: CASE EVENT DATE: 20161019
